FAERS Safety Report 25886600 (Version 1)
Quarter: 2025Q4

REPORT INFORMATION
  Report Type: Spontaneous
  Country: US (occurrence: US)
  Receive Date: 20251006
  Receipt Date: 20251006
  Transmission Date: 20260118
  Serious: Yes (Other)
  Sender: EPIC PHARM
  Company Number: US-EPICPHARMA-US-2025EPCLIT01124

PATIENT
  Age: 39 Year
  Sex: Female

DRUGS (2)
  1. ACETAZOLAMIDE [Suspect]
     Active Substance: ACETAZOLAMIDE
     Indication: Idiopathic intracranial hypertension
     Route: 065
  2. TOPIRAMATE [Suspect]
     Active Substance: TOPIRAMATE
     Indication: Idiopathic intracranial hypertension
     Route: 065

REACTIONS (3)
  - Type 2 diabetes mellitus [Recovered/Resolved]
  - Secondary adrenocortical insufficiency [Recovered/Resolved]
  - Product use in unapproved indication [Unknown]
